FAERS Safety Report 10700996 (Version 1)
Quarter: 2014Q4

REPORT INFORMATION
  Report Type: Spontaneous
  Country: US (occurrence: None)
  Receive Date: 20141224
  Receipt Date: 20141224
  Transmission Date: 20150529
  Serious: Yes (Death)
  Sender: FDA-Public Use
  Company Number: PHEH2014US021705

PATIENT
  Sex: Male

DRUGS (1)
  1. EXJADE [Suspect]
     Active Substance: DEFERASIROX
     Indication: IRON OVERLOAD
     Dosage: 2 DF (500MG TABLET EACH DISSOLVED, QD, ORAL
     Route: 048
     Dates: start: 201302, end: 201409

REACTIONS (2)
  - Myelodysplastic syndrome [None]
  - Disease progression [None]
